FAERS Safety Report 16769524 (Version 1)
Quarter: 2019Q3

REPORT INFORMATION
  Report Type: Other
  Country: SK (occurrence: SK)
  Receive Date: 20190903
  Receipt Date: 20190903
  Transmission Date: 20191005
  Serious: Yes (Hospitalization)
  Sender: FDA-Public Use
  Company Number: SK-COLLEGIUM PHARMACEUTICAL, INC.-SK-2019COL001024

PATIENT
  Age: 83 Year
  Sex: Female

DRUGS (1)
  1. TAPENTADOL [Suspect]
     Active Substance: TAPENTADOL
     Indication: TRIGEMINAL NEURALGIA
     Dosage: 1 DF, QD
     Route: 048

REACTIONS (2)
  - Hyponatraemia [Recovered/Resolved]
  - Vomiting [Recovered/Resolved]

NARRATIVE: CASE EVENT DATE: 201905
